FAERS Safety Report 5965200-8 (Version None)
Quarter: 2008Q4

REPORT INFORMATION
  Report Type: 
  Country: None (occurrence: None)
  Receive Date: 20081125
  Receipt Date: 20081120
  Transmission Date: 20090506
  Serious: No
  Sender: FDA-Public Use
  Company Number: BE-ABBOTT-08P-013-0473254-00

PATIENT
  Sex: Female

DRUGS (4)
  1. HUMIRA [Suspect]
     Indication: ANKYLOSING SPONDYLITIS
     Dates: start: 20070322
  2. METFORMIN HCL [Concomitant]
     Indication: DRUG USE FOR UNKNOWN INDICATION
  3. FENOFIBRATE [Concomitant]
     Indication: DRUG USE FOR UNKNOWN INDICATION
  4. PROPRANOLOL [Concomitant]
     Indication: DRUG USE FOR UNKNOWN INDICATION

REACTIONS (2)
  - ARACHNOID CYST [None]
  - BLOOD GLUCOSE ABNORMAL [None]
